FAERS Safety Report 14654047 (Version 3)
Quarter: 2018Q2

REPORT INFORMATION
  Report Type: Spontaneous
  Country: DE (occurrence: DE)
  Receive Date: 20180319
  Receipt Date: 20180515
  Transmission Date: 20180711
  Serious: Yes (Hospitalization)
  Sender: FDA-Public Use
  Company Number: PHHY2018DE044519

PATIENT
  Age: 39 Year
  Sex: Male
  Weight: 120 kg

DRUGS (8)
  1. OCTENIDINE HYDROCHLORIDE [Concomitant]
     Active Substance: OCTENIDINE HYDROCHLORIDE
     Indication: FUNGAL INFECTION
     Dosage: UNK
     Route: 065
  2. BATRAFEN [Concomitant]
     Indication: FUNGAL INFECTION
     Dosage: UNK
     Route: 065
  3. AMITRIPTYLINE [Suspect]
     Active Substance: AMITRIPTYLINE
     Dosage: 25 MG, QD
     Route: 048
     Dates: start: 20170419, end: 20170425
  4. AMOROLFINE [Concomitant]
     Active Substance: AMOROLFINE
     Indication: FUNGAL INFECTION
     Dosage: UNK
     Route: 065
  5. AMITRIPTYLINE [Suspect]
     Active Substance: AMITRIPTYLINE
     Dosage: 50 MG, QD
     Route: 048
     Dates: start: 20170412, end: 20170418
  6. LITHIUM CARBONATE. [Suspect]
     Active Substance: LITHIUM CARBONATE
     Dosage: 1350 MG, QD
     Route: 048
     Dates: start: 20170509
  7. AMITRIPTYLINE [Suspect]
     Active Substance: AMITRIPTYLINE
     Indication: PRODUCT USED FOR UNKNOWN INDICATION
     Dosage: 75 MG, QD
     Route: 048
     Dates: start: 20150901, end: 20170411
  8. LITHIUM CARBONATE. [Suspect]
     Active Substance: LITHIUM CARBONATE
     Indication: PRODUCT USED FOR UNKNOWN INDICATION
     Dosage: 1125 MG, QD
     Route: 048
     Dates: start: 20150901, end: 20170508

REACTIONS (2)
  - Erectile dysfunction [Recovering/Resolving]
  - Testicular pain [Unknown]

NARRATIVE: CASE EVENT DATE: 20170215
